FAERS Safety Report 24534657 (Version 1)
Quarter: 2024Q4

REPORT INFORMATION
  Report Type: Spontaneous
  Country: US (occurrence: None)
  Receive Date: 20241022
  Receipt Date: 20241022
  Transmission Date: 20250115
  Serious: Yes (Other)
  Sender: Public
  Company Number: None

PATIENT
  Age: 38 Year
  Sex: Female
  Weight: 63.9 kg

DRUGS (1)
  1. AJOVY [Suspect]
     Active Substance: FREMANEZUMAB-VFRM
     Indication: Migraine prophylaxis
     Dosage: OTHER QUANTITY : 1 INJECTION(S);?OTHER FREQUENCY : 1X/MONTH;?
     Route: 058
     Dates: start: 20240718, end: 20241018

REACTIONS (4)
  - Injection site pain [None]
  - Screaming [None]
  - Crying [None]
  - Injection site pain [None]

NARRATIVE: CASE EVENT DATE: 20241018
